FAERS Safety Report 17811404 (Version 2)
Quarter: 2021Q1

REPORT INFORMATION
  Report Type: Spontaneous
  Country: US (occurrence: US)
  Receive Date: 20200521
  Receipt Date: 20210208
  Transmission Date: 20210419
  Serious: No
  Sender: FDA-Public Use
  Company Number: US-PFIZER INC-2020200225

PATIENT
  Age: 54 Year
  Sex: Female
  Weight: 74.39 kg

DRUGS (4)
  1. PREGABALIN. [Suspect]
     Active Substance: PREGABALIN
     Indication: PARAESTHESIA
  2. PREGABALIN. [Suspect]
     Active Substance: PREGABALIN
     Indication: ROAD TRAFFIC ACCIDENT
     Dosage: 100 MG
     Dates: start: 202001, end: 202001
  3. PREGABALIN. [Suspect]
     Active Substance: PREGABALIN
     Indication: SPINAL CORD INJURY
  4. PREGABALIN. [Suspect]
     Active Substance: PREGABALIN
     Indication: CERVICAL VERTEBRAL FRACTURE

REACTIONS (1)
  - Drug ineffective [Unknown]

NARRATIVE: CASE EVENT DATE: 202101
